APPROVED DRUG PRODUCT: PROVENTIL-HFA
Active Ingredient: ALBUTEROL SULFATE
Strength: EQ 0.09MG BASE/INH
Dosage Form/Route: AEROSOL, METERED;INHALATION
Application: N020503 | Product #001 | TE Code: AB1
Applicant: KINDEVA DRUG DELIVERY LP
Approved: Aug 15, 1996 | RLD: Yes | RS: Yes | Type: RX